FAERS Safety Report 11004966 (Version 1)
Quarter: 2015Q2

REPORT INFORMATION
  Report Type: Report from Study
  Country: CA (occurrence: CA)
  Receive Date: 20150409
  Receipt Date: 20150409
  Transmission Date: 20150821
  Serious: Yes (Hospitalization, Other)
  Sender: FDA-Public Use
  Company Number: CA-BAYER-2014-174800

PATIENT
  Age: 71 Year
  Sex: Male

DRUGS (1)
  1. STIVARGA [Suspect]
     Active Substance: REGORAFENIB
     Indication: COLORECTAL CANCER METASTATIC
     Dosage: 160 MG, QD
     Route: 048
     Dates: start: 20141119, end: 20150224

REACTIONS (9)
  - Diarrhoea [Recovering/Resolving]
  - Oral pain [Not Recovered/Not Resolved]
  - Toxicity to various agents [None]
  - Hypertension [Unknown]
  - Dehydration [Recovering/Resolving]
  - Diarrhoea [Unknown]
  - Fatigue [None]
  - Blister [Recovered/Resolved]
  - Colon cancer metastatic [Unknown]

NARRATIVE: CASE EVENT DATE: 2014
